FAERS Safety Report 16128664 (Version 1)
Quarter: 2019Q1

REPORT INFORMATION
  Report Type: Spontaneous
  Country: FI (occurrence: FI)
  Receive Date: 20190328
  Receipt Date: 20190328
  Transmission Date: 20190418
  Serious: Yes (Other)
  Sender: FDA-Public Use
  Company Number: FI-MYLANLABS-2019M1027867

PATIENT
  Age: 20 Year
  Sex: Male

DRUGS (2)
  1. LYMECYCLINE [Suspect]
     Active Substance: LYMECYCLINE
     Indication: SUBCUTANEOUS ABSCESS
     Dosage: UNK
     Dates: start: 201812, end: 2019
  2. LEPONEX [Suspect]
     Active Substance: CLOZAPINE
     Indication: PRODUCT USED FOR UNKNOWN INDICATION
     Dosage: UNK

REACTIONS (2)
  - Blood test abnormal [Unknown]
  - Subcutaneous abscess [Not Recovered/Not Resolved]

NARRATIVE: CASE EVENT DATE: 2018
